FAERS Safety Report 9991607 (Version 1)
Quarter: 2014Q1

REPORT INFORMATION
  Report Type: Spontaneous
  Country: US (occurrence: US)
  Receive Date: 20140310
  Receipt Date: 20140310
  Transmission Date: 20141002
  Serious: Yes (Other)
  Sender: FDA-Public Use
  Company Number: US-PFIZER INC-2014068210

PATIENT
  Age: 53 Year
  Sex: Male
  Weight: 79.37 kg

DRUGS (1)
  1. CELEBREX [Suspect]
     Indication: GASTRIC POLYPS
     Dosage: 400 MG, 2X/DAY

REACTIONS (1)
  - Diabetes mellitus [Not Recovered/Not Resolved]
